FAERS Safety Report 9282540 (Version 1)
Quarter: 2013Q2

REPORT INFORMATION
  Report Type: Spontaneous
  Country: US (occurrence: US)
  Receive Date: 20130510
  Receipt Date: 20130510
  Transmission Date: 20140414
  Serious: Yes (Death, Hospitalization)
  Sender: FDA-Public Use
  Company Number: US-BAYER-2013-057041

PATIENT
  Age: 33 Year
  Sex: Female

DRUGS (8)
  1. YAZ [Suspect]
     Indication: ORAL CONTRACEPTION
     Dosage: UNK
  2. YASMIN [Suspect]
     Dosage: UNK
  3. YASMIN [Suspect]
     Dosage: UNK
     Dates: start: 20090922
  4. AUGMENTIN [Concomitant]
     Dosage: 875 MG, BID
  5. SYMBICORT [Concomitant]
     Indication: ASTHMA
     Dosage: 160/4.5 PUFFS
  6. PRO-AIR [Concomitant]
     Dosage: 2 PUFFS
  7. FLONASE [Concomitant]
     Dosage: 2 SPRAYS
     Route: 045
  8. NORMAL SALINE [Concomitant]
     Route: 042

REACTIONS (1)
  - Pulmonary embolism [Fatal]
